FAERS Safety Report 19446332 (Version 1)
Quarter: 2021Q2

REPORT INFORMATION
  Report Type: Spontaneous
  Country: CA (occurrence: CA)
  Receive Date: 20210622
  Receipt Date: 20210622
  Transmission Date: 20210717
  Serious: Yes (Hospitalization)
  Sender: FDA-Public Use
  Company Number: CA-AUROBINDO-AUR-APL-2021-026135

PATIENT
  Age: 84 Year
  Sex: Female

DRUGS (1)
  1. CLINDAMYCIN. [Suspect]
     Active Substance: CLINDAMYCIN
     Indication: ORAL INFECTION
     Dosage: UNK
     Route: 065

REACTIONS (3)
  - Leukocytosis [Unknown]
  - Diarrhoea [Unknown]
  - Clostridium test positive [Unknown]
